FAERS Safety Report 7037371-6 (Version None)
Quarter: 2010Q4

REPORT INFORMATION
  Report Type: 
  Country: None (occurrence: None)
  Receive Date: 20101011
  Receipt Date: 20101001
  Transmission Date: 20110411
  Serious: Yes (Disabling, Other)
  Sender: FDA-Public Use
  Company Number: US-MYLANLABS-2010S1014282

PATIENT
  Age: 75 Year
  Sex: Male

DRUGS (11)
  1. ALLOPURINOL TAB [Suspect]
     Indication: GOUT
     Route: 048
     Dates: start: 20100409, end: 20100601
  2. COLCHICINE [Suspect]
  3. VYTORIN [Concomitant]
  4. RAMIPRIL [Concomitant]
  5. METOPROLOL SUCCINATE [Concomitant]
  6. FINASTERIDE [Concomitant]
  7. ASPIRIN [Concomitant]
  8. ATENOLOL [Concomitant]
  9. ONE A DAY /02262701/ [Concomitant]
  10. B COMPLEX (B50) [Concomitant]
  11. FISH OIL [Concomitant]

REACTIONS (9)
  - ARTHRALGIA [None]
  - ASTHENIA [None]
  - ERYTHEMA [None]
  - FATIGUE [None]
  - LIMB DISCOMFORT [None]
  - MALAISE [None]
  - MYALGIA [None]
  - OEDEMA PERIPHERAL [None]
  - PAIN IN EXTREMITY [None]
